FAERS Safety Report 18240607 (Version 1)
Quarter: 2020Q3

REPORT INFORMATION
  Report Type: Spontaneous
  Country: CH (occurrence: CH)
  Receive Date: 20200908
  Receipt Date: 20200908
  Transmission Date: 20201103
  Serious: Yes (Hospitalization)
  Sender: FDA-Public Use
  Company Number: CH-ASTRAZENECA-2020SF10673

PATIENT
  Age: 86 Year
  Sex: Female

DRUGS (9)
  1. SEROQUEL [Suspect]
     Active Substance: QUETIAPINE FUMARATE
     Route: 048
     Dates: end: 20200725
  2. SEROQUEL [Suspect]
     Active Substance: QUETIAPINE FUMARATE
     Route: 048
     Dates: start: 20200725, end: 20200804
  3. DAFALGAN [Concomitant]
     Active Substance: ACETAMINOPHEN
     Dosage: FOUR TIMES A DAY
     Route: 065
     Dates: end: 20200725
  4. PANTOZOL [Concomitant]
     Active Substance: PANTOPRAZOLE SODIUM
     Route: 065
  5. COMILORID [Suspect]
     Active Substance: HYDROCHLOROTHIAZIDE
     Route: 065
     Dates: end: 20200725
  6. XARELTO [Concomitant]
     Active Substance: RIVAROXABAN
     Route: 065
  7. BILOL [Concomitant]
     Active Substance: BISOPROLOL
     Route: 065
  8. METOLAZON [Suspect]
     Active Substance: METOLAZONE
     Route: 065
     Dates: end: 20200725
  9. PRAMIPEXOL [Suspect]
     Active Substance: PRAMIPEXOLE
     Route: 065
     Dates: end: 20200725

REACTIONS (2)
  - Inappropriate antidiuretic hormone secretion [Recovered/Resolved]
  - Hyponatraemic coma [Recovered/Resolved]

NARRATIVE: CASE EVENT DATE: 20200725
